FAERS Safety Report 9942486 (Version 1)
Quarter: 2014Q1

REPORT INFORMATION
  Report Type: Report from Study
  Country: US (occurrence: US)
  Receive Date: 20140303
  Receipt Date: 20140303
  Transmission Date: 20141002
  Serious: No
  Sender: FDA-Public Use
  Company Number: US-ABBVIE-13P-163-1043971-00

PATIENT
  Age: 46 Year
  Sex: Male
  Weight: 71.73 kg

DRUGS (8)
  1. HUMIRA [Suspect]
     Indication: CROHN^S DISEASE
     Dates: start: 201201
  2. BABY ASPIRIN [Concomitant]
     Indication: PRODUCT USED FOR UNKNOWN INDICATION
  3. MAGNESIUM OXIDE [Concomitant]
     Indication: PRODUCT USED FOR UNKNOWN INDICATION
  4. POTASSIUM [Concomitant]
     Indication: PRODUCT USED FOR UNKNOWN INDICATION
  5. 6-MP [Concomitant]
     Indication: PRODUCT USED FOR UNKNOWN INDICATION
  6. B-12 [Concomitant]
     Indication: PRODUCT USED FOR UNKNOWN INDICATION
  7. DEXILANT [Concomitant]
     Indication: PRODUCT USED FOR UNKNOWN INDICATION
  8. MULTAQ [Concomitant]
     Indication: PRODUCT USED FOR UNKNOWN INDICATION

REACTIONS (1)
  - Herpes zoster [Recovered/Resolved]
